FAERS Safety Report 8287938-2 (Version None)
Quarter: 2012Q2

REPORT INFORMATION
  Report Type: 
  Country: None (occurrence: None)
  Receive Date: 20120411
  Receipt Date: 20120411
  Transmission Date: 20120825
  Serious: No
  Sender: FDA-Public Use
  Company Number: None

PATIENT
  Sex: Female

DRUGS (1)
  1. ENBREL [Suspect]
     Indication: RHEUMATOID ARTHRITIS
     Dosage: 50MG BIW SQ
     Route: 058
     Dates: start: 20110624

REACTIONS (4)
  - ARTHRALGIA [None]
  - FATIGUE [None]
  - HERPES ZOSTER [None]
  - INSOMNIA [None]
